FAERS Safety Report 4725171-9 (Version None)
Quarter: 2005Q3

REPORT INFORMATION
  Report Type: 
  Country: None (occurrence: None)
  Receive Date: 20050725
  Receipt Date: 20050718
  Transmission Date: 20060218
  Serious: Yes (Other)
  Sender: FDA-Public Use
  Company Number: USA-2005-0020785

PATIENT
  Age: 59 Year
  Sex: Male

DRUGS (3)
  1. PALLADONE [Suspect]
     Indication: PAIN
     Dosage: 24 MG, DAILY, ORAL
     Route: 048
     Dates: start: 20050712, end: 20050713
  2. EFFEXOR [Concomitant]
  3. ZONEGRAN [Concomitant]

REACTIONS (2)
  - FEELING JITTERY [None]
  - SUICIDAL IDEATION [None]
